FAERS Safety Report 6167434-9 (Version None)
Quarter: 2009Q2

REPORT INFORMATION
  Report Type: 
  Country: None (occurrence: None)
  Receive Date: 20090424
  Receipt Date: 20090422
  Transmission Date: 20091009
  Serious: Yes (Death)
  Sender: FDA-Public Use
  Company Number: PHHY2009CU15181

PATIENT
  Age: 34 Year
  Sex: Male

DRUGS (3)
  1. CYCLOSPORINE [Suspect]
     Indication: RENAL TRANSPLANT
     Dosage: 5 MG/KG/DAY
  2. CYCLOSPORINE [Suspect]
     Dosage: 2.5 MG/KG/DAY
  3. PREDNISONE [Concomitant]
     Indication: IMMUNOSUPPRESSION

REACTIONS (16)
  - ACARODERMATITIS [None]
  - ACINETOBACTER INFECTION [None]
  - EPIDERMAL NECROSIS [None]
  - EXCORIATION [None]
  - HERPES SIMPLEX [None]
  - HYPERKERATOSIS [None]
  - HYPOXIA [None]
  - METABOLIC ACIDOSIS [None]
  - PROTEUS INFECTION [None]
  - PRURITUS [None]
  - RASH PAPULAR [None]
  - RASH PUSTULAR [None]
  - RASH VESICULAR [None]
  - RENAL IMPAIRMENT [None]
  - SEPSIS [None]
  - SKIN ULCER [None]
